FAERS Safety Report 16654974 (Version 1)
Quarter: 2019Q3

REPORT INFORMATION
  Report Type: Spontaneous
  Country: US (occurrence: US)
  Receive Date: 20190801
  Receipt Date: 20190801
  Transmission Date: 20191004
  Serious: No
  Sender: FDA-Public Use
  Company Number: US-AUROBINDO-AUR-APL-2019-022361

PATIENT

DRUGS (1)
  1. ALPRAZOLAM. [Suspect]
     Active Substance: ALPRAZOLAM
     Indication: ANXIETY
     Dosage: UNK
     Route: 065

REACTIONS (10)
  - Dry mouth [Unknown]
  - Blood pressure decreased [Unknown]
  - Nausea [Unknown]
  - Insomnia [Unknown]
  - Dry eye [Unknown]
  - Malaise [Unknown]
  - Depressed mood [Unknown]
  - Drug ineffective [Unknown]
  - Dehydration [Unknown]
  - Dry skin [Unknown]
